FAERS Safety Report 7865606-6 (Version None)
Quarter: 2011Q4

REPORT INFORMATION
  Report Type: 
  Country: None (occurrence: None)
  Receive Date: 20111028
  Receipt Date: 20110124
  Transmission Date: 20120403
  Serious: No
  Sender: FDA-Public Use
  Company Number: US-GLAXOSMITHKLINE-A0908602A

PATIENT
  Age: 66 Year
  Sex: Female

DRUGS (11)
  1. ADVAIR DISKUS 100/50 [Suspect]
     Indication: CHRONIC OBSTRUCTIVE PULMONARY DISEASE
     Dosage: 1PUFF TWICE PER DAY
     Route: 055
     Dates: start: 20000101
  2. NEXIUM [Concomitant]
  3. CELEXA [Concomitant]
  4. ZANTAC [Concomitant]
  5. ZYPREXA [Concomitant]
  6. DIOVAN [Concomitant]
  7. TRILAFON [Concomitant]
  8. SPIRIVA [Concomitant]
  9. NORVASC [Concomitant]
  10. VICODIN [Concomitant]
  11. MOBIC [Concomitant]

REACTIONS (7)
  - NASAL CONGESTION [None]
  - MALAISE [None]
  - RHINORRHOEA [None]
  - DRUG ADMINISTRATION ERROR [None]
  - PRODUCT QUALITY ISSUE [None]
  - HYPERSENSITIVITY [None]
  - CHEST PAIN [None]
